FAERS Safety Report 10037869 (Version 1)
Quarter: 2014Q1

REPORT INFORMATION
  Report Type: Spontaneous
  Country: US (occurrence: None)
  Receive Date: 20140325
  Receipt Date: 20140325
  Transmission Date: 20141002
  Serious: Yes (Hospitalization)
  Sender: FDA-Public Use
  Company Number: None

PATIENT
  Age: 51 Year
  Sex: Female
  Weight: 52.16 kg

DRUGS (1)
  1. VISIPAQUE 320 100ML GE HEALTHCARE [Suspect]
     Indication: COMPUTERISED TOMOGRAM
     Route: 042
     Dates: start: 20140211, end: 20140227

REACTIONS (2)
  - Dyspnoea [None]
  - Flushing [None]
